FAERS Safety Report 7058288-7 (Version None)
Quarter: 2010Q4

REPORT INFORMATION
  Report Type: 
  Country: None (occurrence: None)
  Receive Date: 20101022
  Receipt Date: 20101014
  Transmission Date: 20110411
  Serious: No
  Sender: FDA-Public Use
  Company Number: US-PFIZER INC-2010131519

PATIENT
  Sex: Female
  Weight: 69.388 kg

DRUGS (9)
  1. CALAN [Suspect]
     Indication: HYPERTENSION
     Dosage: 240 MG, DAILY
     Dates: start: 20100101
  2. CRESTOR [Concomitant]
     Indication: BLOOD CHOLESTEROL INCREASED
     Dosage: 20 MG, DAILY
  3. MONTELUKAST SODIUM [Concomitant]
     Indication: ASTHMA
     Dosage: 10 MG, DAILY
  4. ADVAIR DISKUS 100/50 [Concomitant]
     Indication: ASTHMA
     Dosage: UNK
  5. NEXIUM [Concomitant]
     Indication: GASTROOESOPHAGEAL REFLUX DISEASE
     Dosage: UNK
  6. ACETYLSALICYLIC ACID [Concomitant]
     Dosage: 81 MG, DAILY
  7. LYRICA [Concomitant]
     Indication: PAIN IN EXTREMITY
     Dosage: 100 MG, UNK
  8. LASIX [Concomitant]
     Indication: DIURETIC THERAPY
     Dosage: UNK
  9. ALBUTEROL [Concomitant]
     Dosage: UNK

REACTIONS (1)
  - HYPERTENSION [None]
